FAERS Safety Report 5126573-1 (Version None)
Quarter: 2006Q4

REPORT INFORMATION
  Report Type: 
  Country: None (occurrence: None)
  Receive Date: 20061012
  Receipt Date: 20061012
  Transmission Date: 20070319
  Serious: Yes (Hospitalization)
  Sender: FDA-Public Use
  Company Number: None

PATIENT
  Age: 81 Year
  Sex: Female
  Weight: 70.3075 kg

DRUGS (1)
  1. DOXIL [Suspect]
     Indication: BREAST CANCER METASTATIC
     Dosage: DOXIL   40MG/M2   Q 28 DAYS  IV DRIP
     Route: 041
     Dates: start: 20061004, end: 20061004

REACTIONS (1)
  - MYOCARDIAL INFARCTION [None]
